FAERS Safety Report 10260043 (Version 1)
Quarter: 2014Q2

REPORT INFORMATION
  Report Type: Report from Study
  Country: KR (occurrence: KR)
  Receive Date: 20140625
  Receipt Date: 20140625
  Transmission Date: 20141212
  Serious: Yes (Hospitalization)
  Sender: FDA-Public Use
  Company Number: KR-BAXTER-2014BAX033012

PATIENT
  Age: 38 Year
  Sex: Female
  Weight: 55 kg

DRUGS (6)
  1. EXTRANEAL [Suspect]
     Indication: PERITONEAL DIALYSIS
     Route: 033
     Dates: start: 20131118
  2. EXTRANEAL [Suspect]
     Indication: RENAL FAILURE CHRONIC
  3. PHYSIONEAL 1.5% [Suspect]
     Indication: PERITONEAL DIALYSIS
     Route: 033
     Dates: start: 20131118
  4. PHYSIONEAL 1.5% [Suspect]
     Indication: RENAL FAILURE CHRONIC
  5. PHYSIONEAL 2.5% [Suspect]
     Indication: PERITONEAL DIALYSIS
     Route: 033
     Dates: start: 20131118
  6. PHYSIONEAL 2.5% [Suspect]
     Indication: RENAL FAILURE CHRONIC

REACTIONS (1)
  - Gastritis erosive [Unknown]
